FAERS Safety Report 9199599 (Version 1)
Quarter: 2013Q1

REPORT INFORMATION
  Report Type: Spontaneous
  Country: FR (occurrence: FR)
  Receive Date: 20130329
  Receipt Date: 20130329
  Transmission Date: 20140127
  Serious: Yes (Hospitalization)
  Sender: FDA-Public Use
  Company Number: PHHY2013FR030879

PATIENT
  Age: 55 Year
  Sex: Male

DRUGS (3)
  1. RASILEZ [Suspect]
     Indication: HYPERTENSION
     Dosage: 1 DF, DAILY
     Route: 048
     Dates: start: 2009
  2. KARDEGIC [Concomitant]
     Dosage: UNK
     Route: 048
     Dates: start: 201111
  3. CRESTOR [Concomitant]
     Dosage: UNK
     Route: 048
     Dates: start: 201111

REACTIONS (1)
  - Cerebrovascular accident [Recovered/Resolved with Sequelae]
